FAERS Safety Report 8977442 (Version 2)
Quarter: 2013Q1

REPORT INFORMATION
  Report Type: Spontaneous
  Country: DE (occurrence: DE)
  Receive Date: 20121219
  Receipt Date: 20130130
  Transmission Date: 20140127
  Serious: Yes (Other)
  Sender: FDA-Public Use
  Company Number: DE-ELI_LILLY_AND_COMPANY-DE201212002909

PATIENT
  Age: 53 Year
  Sex: Female

DRUGS (14)
  1. CYMBALTA [Suspect]
     Indication: DEPRESSION
     Dosage: 30 MG, UNKNOWN
     Dates: start: 20120705
  2. CYMBALTA [Suspect]
     Dosage: 60 MG, UNKNOWN
     Dates: end: 20120928
  3. ACIC [Concomitant]
     Dosage: 2 DF, BID
  4. PANTOZOL [Concomitant]
     Dosage: 40 MG, QD
  5. TAVOR [Concomitant]
     Dosage: 1 MG, QD
  6. SAROTEN [Concomitant]
     Dosage: 50 MG, QD
  7. COTRIM FORTE [Concomitant]
     Dosage: 2 DF, 3/W
  8. AMPHO MORONAL [Concomitant]
     Dosage: UNK
  9. PASPERTIN [Concomitant]
     Dosage: 1 DF, TID
  10. AVALOX [Concomitant]
     Dosage: 400 MG, QD
  11. FORTECORTIN [Concomitant]
     Dosage: 4 MG, QD
  12. KCL [Concomitant]
     Dosage: 2 DF, TID
  13. ZOMETA [Concomitant]
     Dosage: 1 DF, MONTHLY (1/M)
  14. MELPHALAN [Concomitant]
     Dosage: UNK
     Dates: start: 20120720

REACTIONS (5)
  - Gamma-glutamyltransferase increased [Not Recovered/Not Resolved]
  - Blood alkaline phosphatase increased [Not Recovered/Not Resolved]
  - Aspartate aminotransferase increased [Not Recovered/Not Resolved]
  - Alanine aminotransferase increased [Not Recovered/Not Resolved]
  - Blood lactate dehydrogenase increased [Not Recovered/Not Resolved]
